FAERS Safety Report 8903795 (Version 1)
Quarter: 2012Q4

REPORT INFORMATION
  Report Type: 
  Country: JP (occurrence: JP)
  Receive Date: 20121113
  Receipt Date: 20121113
  Transmission Date: 20130627
  Serious: Yes (Hospitalization)
  Sender: FDA-Public Use
  Company Number: JP-009507513-1211JPN004985

PATIENT
  Age: 55 Year
  Sex: Male
  Weight: 61 kg

DRUGS (11)
  1. REBETOL [Suspect]
     Indication: HEPATITIS C
     Dosage: 800 mg, qd
     Route: 048
     Dates: start: 20120802, end: 20120823
  2. REBETOL [Suspect]
     Dosage: 600 mg, qd
     Route: 048
     Dates: start: 20120824, end: 20120913
  3. REBETOL [Suspect]
     Dosage: 400 mg, qd
     Route: 048
     Dates: start: 20120914, end: 20121019
  4. PEGINTRON [Suspect]
     Indication: HEPATITIS C
     Dosage: 100 Microgram per kilogram, UNK
     Route: 058
     Dates: start: 20120802
  5. TELAVIC [Suspect]
     Indication: HEPATITIS C
     Dosage: 2250 mg, qd
     Route: 048
     Dates: start: 20120802, end: 20120906
  6. TELAVIC [Suspect]
     Dosage: 1500 mg, qd
     Route: 048
     Dates: start: 20120907, end: 20121019
  7. PREDONINE [Concomitant]
     Indication: PROPHYLAXIS
     Dosage: 10 mg, qd
     Route: 048
     Dates: start: 20120802, end: 20120808
  8. PREDONINE [Concomitant]
     Dosage: 5 mg, qd
     Route: 048
     Dates: start: 20120809, end: 20121023
  9. PREDONINE [Concomitant]
     Dosage: 15 mg, qd
     Route: 048
     Dates: start: 20121024
  10. LANSOPRAZOLE [Concomitant]
     Indication: PROPHYLAXIS
     Dosage: 15 mg, qd
     Route: 048
     Dates: start: 20120802
  11. ALOSITOL [Concomitant]
     Indication: PROPHYLAXIS
     Dosage: 200 mg, qd
     Route: 048

REACTIONS (1)
  - Malaise [Recovering/Resolving]
